FAERS Safety Report 9601130 (Version 2)
Quarter: 2013Q4

REPORT INFORMATION
  Report Type: Spontaneous
  Country: US (occurrence: US)
  Receive Date: 20131004
  Receipt Date: 20131004
  Transmission Date: 20140711
  Serious: No
  Sender: FDA-Public Use
  Company Number: US-AMGEN-USASP2013034090

PATIENT
  Age: 40 Year
  Sex: Female
  Weight: 61.22 kg

DRUGS (2)
  1. ENBREL [Suspect]
     Indication: PSORIATIC ARTHROPATHY
     Dosage: 50 UNK, QWK
     Route: 065
     Dates: start: 20121222, end: 20130117
  2. MEDROL                             /00049601/ [Concomitant]
     Indication: PSORIATIC ARTHROPATHY
     Dosage: 8 G, PRN
     Route: 048
     Dates: start: 20121207, end: 20130525

REACTIONS (2)
  - Drug ineffective [Unknown]
  - Headache [Recovered/Resolved]
